FAERS Safety Report 5502800-3 (Version None)
Quarter: 2007Q4

REPORT INFORMATION
  Report Type: 
  Country: None (occurrence: None)
  Receive Date: 20071031
  Receipt Date: 20071018
  Transmission Date: 20080405
  Serious: Yes (Hospitalization)
  Sender: FDA-Public Use
  Company Number: US-AMGEN-QUU248695

PATIENT
  Sex: Female

DRUGS (2)
  1. ENBREL [Suspect]
     Indication: PSORIATIC ARTHROPATHY
     Route: 058
     Dates: start: 20060315
  2. ENBREL [Suspect]
     Indication: PSORIASIS

REACTIONS (2)
  - JOINT ARTHROPLASTY [None]
  - PRURITUS GENERALISED [None]
